FAERS Safety Report 18042427 (Version 1)
Quarter: 2020Q3

REPORT INFORMATION
  Report Type: Spontaneous
  Country: JP (occurrence: JP)
  Receive Date: 20200720
  Receipt Date: 20200720
  Transmission Date: 20201103
  Serious: Yes (Hospitalization)
  Sender: FDA-Public Use
  Company Number: JP-AMGEN-JPNSP2020115300

PATIENT
  Age: 87 Year
  Sex: Female
  Weight: 37 kg

DRUGS (3)
  1. PRALIA [Suspect]
     Active Substance: DENOSUMAB
     Indication: OSTEOPOROSIS
     Dosage: UNK
     Route: 065
  2. STEROIDS [Concomitant]
     Active Substance: UNSPECIFIED INGREDIENT
     Indication: POLYMYOSITIS
     Dosage: 5MG/DAY
     Route: 065
     Dates: end: 20200702
  3. STEROIDS [Concomitant]
     Active Substance: UNSPECIFIED INGREDIENT
     Dosage: 3MG/DAY
     Route: 065
     Dates: start: 20200703

REACTIONS (6)
  - Internal haemorrhage [Not Recovered/Not Resolved]
  - Loss of consciousness [Not Recovered/Not Resolved]
  - Femur fracture [Not Recovered/Not Resolved]
  - Excessive dietary supplement intake [Not Recovered/Not Resolved]
  - Anaemia [Not Recovered/Not Resolved]
  - Limb discomfort [Not Recovered/Not Resolved]

NARRATIVE: CASE EVENT DATE: 20200213
